FAERS Safety Report 5938008-7 (Version None)
Quarter: 2008Q4

REPORT INFORMATION
  Report Type: 
  Country: None (occurrence: None)
  Receive Date: 20081031
  Receipt Date: 20081020
  Transmission Date: 20090506
  Serious: Yes (Other)
  Sender: FDA-Public Use
  Company Number: GB-BAUSCH-2008BL004506

PATIENT
  Age: 39 Year
  Sex: Male

DRUGS (9)
  1. PREDNISOLONE [Suspect]
     Indication: CONJUNCTIVITIS
     Dates: start: 20040801
  2. PREDNISOLONE [Suspect]
     Dates: start: 20051001
  3. DAPSONE [Suspect]
     Indication: CONJUNCTIVITIS
     Dates: start: 20040101
  4. DAPSONE [Suspect]
     Dates: start: 20040801
  5. DAPSONE [Suspect]
     Dates: start: 20050501
  6. DAPSONE [Suspect]
     Dates: start: 20051001
  7. AZATHIOPRINE [Suspect]
     Indication: CONJUNCTIVITIS
     Dates: start: 20040801
  8. MYCOPHENOLATE SODIUM [Suspect]
     Indication: CONJUNCTIVITIS
     Dates: start: 20050501
  9. CYCLOPHOSPHAMIDE [Suspect]
     Indication: CONJUNCTIVITIS
     Dates: start: 20051001

REACTIONS (1)
  - DRUG INEFFECTIVE [None]
